FAERS Safety Report 10296099 (Version 2)
Quarter: 2015Q3

REPORT INFORMATION
  Report Type: Spontaneous
  Country: US (occurrence: US)
  Receive Date: 20140710
  Receipt Date: 20150709
  Transmission Date: 20151125
  Serious: No
  Sender: FDA-Public Use
  Company Number: US-PURDUE-USA-2014-0114510

PATIENT
  Age: 54 Year
  Sex: Male
  Weight: 90.7 kg

DRUGS (2)
  1. BUTRANS [Suspect]
     Active Substance: BUPRENORPHINE
     Indication: BACK PAIN
     Dosage: 10 MCG/HR, WEEKLY
     Route: 062
     Dates: start: 20140528, end: 20140603
  2. BUTRANS [Suspect]
     Active Substance: BUPRENORPHINE
     Indication: SPINAL OSTEOARTHRITIS
     Dosage: 15 MCG/HR, WEEKLY
     Route: 062
     Dates: start: 20140417, end: 20140528

REACTIONS (5)
  - Insomnia [Unknown]
  - Restlessness [Unknown]
  - Irritability [Unknown]
  - Feeling jittery [Unknown]
  - Anxiety [Unknown]

NARRATIVE: CASE EVENT DATE: 20140530
